FAERS Safety Report 21034103 (Version 3)
Quarter: 2022Q3

REPORT INFORMATION
  Report Type: Spontaneous
  Country: US (occurrence: US)
  Receive Date: 20220701
  Receipt Date: 20220812
  Transmission Date: 20221027
  Serious: No
  Sender: FDA-Public Use
  Company Number: US-BAYER-2022A090945

PATIENT
  Sex: Female

DRUGS (1)
  1. MIRENA [Suspect]
     Active Substance: LEVONORGESTREL
     Dosage: 20?G/DAY
     Route: 015
     Dates: start: 2018

REACTIONS (3)
  - Feeling abnormal [Not Recovered/Not Resolved]
  - Abdominal pain lower [Recovered/Resolved]
  - Heavy menstrual bleeding [Recovered/Resolved]

NARRATIVE: CASE EVENT DATE: 20220401
